FAERS Safety Report 5838891-X (Version None)
Quarter: 2008Q3

REPORT INFORMATION
  Report Type: 
  Country: None (occurrence: None)
  Receive Date: 20080808
  Receipt Date: 20080729
  Transmission Date: 20090109
  Serious: Yes (Hospitalization)
  Sender: FDA-Public Use
  Company Number: US-ABBOTT-08P-163-0465212-00

PATIENT
  Sex: Female
  Weight: 12 kg

DRUGS (7)
  1. HUMIRA [Suspect]
     Indication: CROHN'S DISEASE
     Route: 058
     Dates: start: 20080709, end: 20080709
  2. HUMIRA [Suspect]
     Dates: start: 20080723
  3. PREDNISOLONE SODIUM PHOSPHATE [Concomitant]
     Indication: DRUG USE FOR UNKNOWN INDICATION
     Dosage: 15MG/5ML
  4. LANSOPRAZOLE [Concomitant]
     Indication: DRUG USE FOR UNKNOWN INDICATION
  5. MESALAMINE [Concomitant]
     Indication: DRUG USE FOR UNKNOWN INDICATION
     Dosage: 2 CAPSULE IN AM; 1 CAPSULE IN PM
  6. METRONIDAZOLE HCL [Concomitant]
     Indication: DRUG USE FOR UNKNOWN INDICATION
  7. IRON SUPPLEMENT [Concomitant]
     Indication: ANAEMIA
     Dosage: 50MG/2ML

REACTIONS (1)
  - STAPHYLOCOCCAL INFECTION [None]
